FAERS Safety Report 13691774 (Version 3)
Quarter: 2021Q3

REPORT INFORMATION
  Report Type: Spontaneous
  Country: FR (occurrence: FR)
  Receive Date: 20170626
  Receipt Date: 20210914
  Transmission Date: 20211014
  Serious: Yes (Hospitalization, Disabling, Congenital Anomaly, Other)
  Sender: FDA-Public Use
  Company Number: FR-ABBVIE-17P-056-2019919-00

PATIENT
  Sex: Female

DRUGS (2)
  1. SPECIAFOLDINE [Concomitant]
     Active Substance: FOLIC ACID
     Indication: PRODUCT USED FOR UNKNOWN INDICATION
     Route: 065
  2. DEPAKINE CHRONO [Suspect]
     Active Substance: VALPROATE SODIUM
     Indication: MATERNAL EXPOSURE TIMING UNSPECIFIED
     Route: 064

REACTIONS (55)
  - Presyncope [Unknown]
  - Cognitive disorder [Unknown]
  - Skeletal dysplasia [Unknown]
  - Headache [Unknown]
  - Foetal exposure during pregnancy [Unknown]
  - Laryngeal disorder [Unknown]
  - Bradycardia [Unknown]
  - Emotional distress [Unknown]
  - Aortic valve incompetence [Unknown]
  - Auditory neuropathy spectrum disorder [Unknown]
  - Hand deformity [Unknown]
  - Oropharyngeal discomfort [Unknown]
  - Clinodactyly [Unknown]
  - Brachydactyly [Unknown]
  - Spina bifida [Unknown]
  - Scoliosis [Unknown]
  - Cardiac murmur [Unknown]
  - Disorientation [Unknown]
  - Suicidal ideation [Unknown]
  - Heart disease congenital [Unknown]
  - Learning disorder [Unknown]
  - Memory impairment [Unknown]
  - Deformity of orbit [Unknown]
  - Coarctation of the aorta [Unknown]
  - Foot deformity [Unknown]
  - Gastrooesophageal reflux disease [Unknown]
  - Dyspnoea exertional [Unknown]
  - Ear disorder [Unknown]
  - Deafness [Unknown]
  - Syndactyly [Unknown]
  - Attention deficit hyperactivity disorder [Unknown]
  - Obsessive-compulsive disorder [Unknown]
  - Fatigue [Unknown]
  - Electrocardiogram abnormal [Unknown]
  - Hypersensitivity [Unknown]
  - Pharyngeal disorder [Unknown]
  - Dysmorphism [Unknown]
  - Hypertelorism [Unknown]
  - Nasal disorder [Unknown]
  - Bone neoplasm [Not Recovered/Not Resolved]
  - Osteofibroma [Unknown]
  - Behaviour disorder [Unknown]
  - Fibrous dysplasia of jaw [Unknown]
  - Lacrimation increased [Unknown]
  - Thoracic outlet syndrome [Unknown]
  - Bicuspid aortic valve [Unknown]
  - Executive dysfunction [Unknown]
  - Communication disorder [Unknown]
  - Foetal anticonvulsant syndrome [Unknown]
  - Appendicitis [Unknown]
  - Heterophoria [Unknown]
  - Tooth hypoplasia [Unknown]
  - Fine motor skill dysfunction [Unknown]
  - Refraction disorder [Unknown]
  - Enuresis [Unknown]
